FAERS Safety Report 23855581 (Version 1)
Quarter: 2024Q2

REPORT INFORMATION
  Report Type: Spontaneous
  Country: US (occurrence: US)
  Receive Date: 20240514
  Receipt Date: 20240514
  Transmission Date: 20240716
  Serious: Yes (Other)
  Sender: FDA-Public Use
  Company Number: US-FOUNDATIONCONSUMERHC-2024-US-026510

PATIENT
  Age: 91 Year
  Sex: Male
  Weight: 80.29 kg

DRUGS (9)
  1. FIBERCON [Suspect]
     Active Substance: CALCIUM POLYCARBOPHIL
     Indication: Bowel movement irregularity
     Dosage: 2 CAPLETS ONCE DAILY AND THEN 1 CAPLET TWICE DAILY
     Route: 048
     Dates: start: 20240122
  2. ASPIRIN [Concomitant]
     Active Substance: ASPIRIN
     Dosage: 81MG THREE TIMES WEEKLY
  3. SOTALOL [Concomitant]
     Active Substance: SOTALOL
  4. ELIQUIS [Concomitant]
     Active Substance: APIXABAN
     Dosage: 5MG DAILY
  5. TYLENOL [Concomitant]
     Active Substance: ACETAMINOPHEN
  6. FLONASE [Concomitant]
     Active Substance: FLUTICASONE PROPIONATE
  7. LASTACAFT [Concomitant]
     Active Substance: ALCAFTADINE
  8. VITAMIN D3 [Concomitant]
     Active Substance: CHOLECALCIFEROL
  9. ONE-A-DAY NOS [Concomitant]
     Active Substance: MINERALS\VITAMINS

REACTIONS (3)
  - Thrombosis [Unknown]
  - Intentional product misuse [Not Recovered/Not Resolved]
  - Product use issue [Not Recovered/Not Resolved]

NARRATIVE: CASE EVENT DATE: 20240122
